FAERS Safety Report 5488811-5 (Version None)
Quarter: 2007Q4

REPORT INFORMATION
  Report Type: 
  Country: None (occurrence: None)
  Receive Date: 20071017
  Receipt Date: 20071015
  Transmission Date: 20080405
  Serious: Yes (Hospitalization)
  Sender: FDA-Public Use
  Company Number: US-MERCK-0708USA00740

PATIENT
  Age: 83 Year
  Sex: Male

DRUGS (3)
  1. JANUVIA [Suspect]
     Indication: TYPE 2 DIABETES MELLITUS
     Route: 048
     Dates: start: 20070701, end: 20070729
  2. METFORMIN [Concomitant]
     Route: 065
  3. GLYBURIDE [Suspect]
     Route: 065
     Dates: end: 20070729

REACTIONS (1)
  - HYPOGLYCAEMIA [None]
